FAERS Safety Report 24437325 (Version 2)
Quarter: 2024Q4

REPORT INFORMATION
  Report Type: Spontaneous
  Country: US (occurrence: US)
  Receive Date: 20241015
  Receipt Date: 20241111
  Transmission Date: 20250114
  Serious: No
  Sender: TOLMAR
  Company Number: US-TOLMAR, INC.-24US052724

PATIENT

DRUGS (2)
  1. FENSOLVI [Suspect]
     Active Substance: LEUPROLIDE ACETATE
     Indication: Precocious puberty
     Dosage: 45 MILLIGRAM
     Dates: start: 20240325
  2. DEVICE [Suspect]
     Active Substance: DEVICE
     Indication: Precocious puberty
     Dosage: UNK

REACTIONS (4)
  - Anger [Unknown]
  - Mood swings [Unknown]
  - Tearfulness [Unknown]
  - Drug ineffective [Unknown]

NARRATIVE: CASE EVENT DATE: 20240418
